FAERS Safety Report 9690403 (Version 1)
Quarter: 2013Q4

REPORT INFORMATION
  Report Type: Spontaneous
  Country: US (occurrence: US)
  Receive Date: 20131115
  Receipt Date: 20131115
  Transmission Date: 20140711
  Serious: Yes (Other)
  Sender: FDA-Public Use
  Company Number: US-AMGEN-USASP2013080410

PATIENT
  Age: 41 Year
  Sex: Female

DRUGS (4)
  1. NEULASTA [Suspect]
     Indication: PRODUCT USED FOR UNKNOWN INDICATION
     Dosage: UNK
     Route: 065
  2. ADRIAMYCIN                         /00330901/ [Concomitant]
     Indication: BREAST CANCER
     Dosage: UNK
  3. CYTOXAN [Concomitant]
     Indication: BREAST CANCER
     Dosage: UNK
  4. TAXOL [Concomitant]
     Indication: BREAST CANCER
     Dosage: UNK

REACTIONS (3)
  - Neutrophil count decreased [Unknown]
  - Candida infection [Unknown]
  - Incorrect product storage [Unknown]
